FAERS Safety Report 4424663-X (Version None)
Quarter: 2004Q3

REPORT INFORMATION
  Report Type: 
  Country: None (occurrence: None)
  Receive Date: 20040805
  Receipt Date: 20040729
  Transmission Date: 20050211
  Serious: Yes (Hospitalization)
  Sender: FDA-Public Use
  Company Number: TCI2004A01948

PATIENT
  Age: 40 Year
  Sex: Female

DRUGS (3)
  1. ACTOS [Suspect]
     Indication: DIABETES MELLITUS INSULIN-DEPENDENT
     Dosage: 15 MG (15 MG, 1 IN 1 D)  ; 30 MG (30 MG, 1 IN 1 D) PER ORAL
     Route: 048
     Dates: start: 20040316, end: 20040422
  2. ACTOS [Suspect]
     Indication: DIABETES MELLITUS INSULIN-DEPENDENT
     Dosage: 15 MG (15 MG, 1 IN 1 D)  ; 30 MG (30 MG, 1 IN 1 D) PER ORAL
     Route: 048
     Dates: start: 20040423, end: 20040426
  3. AMARYL [Suspect]
     Indication: DIABETES MELLITUS INSULIN-DEPENDENT
     Dosage: 3 MG (3 MG, 1 D) PER ORAL
     Route: 048
     Dates: start: 20040101

REACTIONS (6)
  - FACE OEDEMA [None]
  - HEPATIC STEATOSIS [None]
  - KETOSIS [None]
  - LIVER DISORDER [None]
  - OEDEMA PERIPHERAL [None]
  - WHITE BLOOD CELL COUNT DECREASED [None]
